FAERS Safety Report 6378440-3 (Version None)
Quarter: 2009Q3

REPORT INFORMATION
  Report Type: 
  Country: None (occurrence: None)
  Receive Date: 20090927
  Receipt Date: 20090909
  Transmission Date: 20100115
  Serious: Yes (Hospitalization, Other)
  Sender: FDA-Public Use
  Company Number: US-BAYER-200933655NA

PATIENT
  Age: 55 Year
  Sex: Male
  Weight: 157 kg

DRUGS (1)
  1. MAGNEVIST [Suspect]
     Indication: DRUG USE FOR UNKNOWN INDICATION
     Dosage: TOTAL DAILY DOSE: 15 ML
     Dates: start: 20080501, end: 20080501

REACTIONS (3)
  - ANGIOEDEMA [None]
  - DYSGEUSIA [None]
  - SNEEZING [None]
